FAERS Safety Report 5304397-X (Version None)
Quarter: 2007Q2

REPORT INFORMATION
  Report Type: 
  Country: None (occurrence: None)
  Receive Date: 20070413
  Receipt Date: 20070402
  Transmission Date: 20071010
  Serious: Yes (Other)
  Sender: FDA-Public Use
  Company Number: B0465389A

PATIENT
  Age: 12 Year
  Sex: Female

DRUGS (2)
  1. FLOVENT [Suspect]
     Indication: WHEEZING
     Dosage: 440 MCG/ PER DAY / INHALED
     Route: 055
  2. LOPINAVIR + RITONAVIR (FORMULATION UNKNOWN) (LOPINAVIR + RITONAVIR) [Suspect]
     Indication: HIV INFECTION

REACTIONS (2)
  - CUSHING'S SYNDROME [None]
  - WEIGHT INCREASED [None]
